FAERS Safety Report 7400133-1 (Version None)
Quarter: 2011Q2

REPORT INFORMATION
  Report Type: 
  Country: None (occurrence: None)
  Receive Date: 20110407
  Receipt Date: 20110404
  Transmission Date: 20111010
  Serious: Yes (Hospitalization, Other)
  Sender: FDA-Public Use
  Company Number: IE-ABBOTT-11P-229-0702458-00

PATIENT
  Sex: Female

DRUGS (46)
  1. HUMIRA [Suspect]
     Indication: COLITIS ULCERATIVE
     Route: 058
     Dates: start: 20081001, end: 20110101
  2. POLYSORBATE 80 [Suspect]
     Indication: PRODUCT USED FOR UNKNOWN INDICATION
  3. SODIUM CHLORIDE [Suspect]
     Indication: PRODUCT USED FOR UNKNOWN INDICATION
  4. INDIGO CARMINE ALUMINIUM LAKE FD+C BLUE NO.2 (E132) [Concomitant]
     Indication: PRODUCT USED FOR UNKNOWN INDICATION
  5. LECITHIN [Concomitant]
     Indication: PRODUCT USED FOR UNKNOWN INDICATION
  6. POLYVINYL ALCOHOL [Concomitant]
     Indication: PRODUCT USED FOR UNKNOWN INDICATION
  7. SODIUM BICARBONATE [Concomitant]
     Indication: PRODUCT USED FOR UNKNOWN INDICATION
  8. SODIUM CARBOXYLMETHYL CELLULOSE [Concomitant]
     Indication: PRODUCT USED FOR UNKNOWN INDICATION
  9. HUMIRA [Suspect]
     Indication: SERONEGATIVE ARTHRITIS
     Route: 058
     Dates: start: 20080101, end: 20081001
  10. BEESWAX WHITE, CALCIUM CARBONATE, CARMINE, CARNAUBA WAX (E903) [Concomitant]
     Indication: PRODUCT USED FOR UNKNOWN INDICATION
  11. COLLOIDAL [Concomitant]
     Indication: PRODUCT USED FOR UNKNOWN INDICATION
  12. STEARIC ACID [Concomitant]
     Indication: PRODUCT USED FOR UNKNOWN INDICATION
  13. MACROGOL 4000 [Concomitant]
     Indication: PRODUCT USED FOR UNKNOWN INDICATION
  14. MAGNESIUM STEARATE [Concomitant]
     Indication: PRODUCT USED FOR UNKNOWN INDICATION
  15. MAIZE STARCH [Concomitant]
     Indication: PRODUCT USED FOR UNKNOWN INDICATION
  16. OPAGLOS [Concomitant]
     Indication: PRODUCT USED FOR UNKNOWN INDICATION
  17. SORBIC ACID [Concomitant]
     Indication: PRODUCT USED FOR UNKNOWN INDICATION
  18. CELLULOSE MICROCRYSTALLINE [Concomitant]
     Indication: PRODUCT USED FOR UNKNOWN INDICATION
  19. SODIUM STARCH GLYCOLLATE [Concomitant]
     Indication: PRODUCT USED FOR UNKNOWN INDICATION
  20. HUMIRA [Suspect]
  21. PURIFIED TALC [Concomitant]
     Indication: PRODUCT USED FOR UNKNOWN INDICATION
  22. SILICON DIOXIDE [Concomitant]
     Indication: PRODUCT USED FOR UNKNOWN INDICATION
  23. TRIETHYL CITRATE [Concomitant]
     Indication: PRODUCT USED FOR UNKNOWN INDICATION
  24. AMLODIPINE BESYLATE [Concomitant]
     Indication: PRODUCT USED FOR UNKNOWN INDICATION
  25. ELTROXIN [Concomitant]
     Indication: HYPOTHYROIDISM
  26. SODIUM CITRATE [Suspect]
     Indication: PRODUCT USED FOR UNKNOWN INDICATION
  27. METHYLCELLULOSE [Concomitant]
     Indication: PRODUCT USED FOR UNKNOWN INDICATION
  28. PREDNISOLONE [Concomitant]
     Indication: PRODUCT USED FOR UNKNOWN INDICATION
  29. ISTIN [Concomitant]
     Indication: HYPERTENSION
     Route: 048
     Dates: start: 20100620
  30. DELTACORTRIL ENTERIC [Concomitant]
     Indication: PRODUCT USED FOR UNKNOWN INDICATION
     Route: 048
     Dates: start: 20100603
  31. POLYSORBATE 20 [Concomitant]
     Indication: PRODUCT USED FOR UNKNOWN INDICATION
  32. SODIUM ALGINATE [Concomitant]
     Indication: PRODUCT USED FOR UNKNOWN INDICATION
  33. XANTHAN GUM (E145) [Concomitant]
     Indication: PRODUCT USED FOR UNKNOWN INDICATION
  34. CALCIUM PHOSPHATE DIBASIC [Concomitant]
     Indication: PRODUCT USED FOR UNKNOWN INDICATION
  35. MAGNESIUM STEARATE [Concomitant]
  36. METHOTREXATE [Concomitant]
     Indication: ARTHRITIS
     Route: 048
     Dates: start: 20080301
  37. MANNITOL [Suspect]
     Indication: PRODUCT USED FOR UNKNOWN INDICATION
  38. WATER FOR INJECTION [Suspect]
     Indication: PRODUCT USED FOR UNKNOWN INDICATION
  39. CITRIC ACID MONOHYDRATE [Suspect]
     Indication: PRODUCT USED FOR UNKNOWN INDICATION
  40. DISODIUM PHOSPHATE DIHYDRATE [Suspect]
     Indication: PRODUCT USED FOR UNKNOWN INDICATION
  41. SODIUM DIHYDROGEN PHOSPHATE DIHYDRATE [Suspect]
     Indication: PRODUCT USED FOR UNKNOWN INDICATION
  42. SODIUM HYDROXIDE [Suspect]
     Indication: PRODUCT USED FOR UNKNOWN INDICATION
  43. LACTOSE ANHYDROUS [Concomitant]
     Indication: PRODUCT USED FOR UNKNOWN INDICATION
  44. LACTOSE MONOHYDRATE PH.EUR [Concomitant]
     Indication: PRODUCT USED FOR UNKNOWN INDICATION
  45. POLYVINYL ACETATE PHTHALATE [Concomitant]
     Indication: PRODUCT USED FOR UNKNOWN INDICATION
  46. TITANIUM DIOXIDE [Concomitant]
     Indication: PRODUCT USED FOR UNKNOWN INDICATION

REACTIONS (14)
  - INTESTINAL STENOSIS [None]
  - OVARIAN CANCER METASTATIC [None]
  - METASTASES TO PERITONEUM [None]
  - NODULE [None]
  - ASCITES [None]
  - HEPATIC CANCER METASTATIC [None]
  - METASTASES TO LYMPH NODES [None]
  - LIVER DISORDER [None]
  - METASTASES TO LIVER [None]
  - NAUSEA [None]
  - GAMMA-GLUTAMYLTRANSFERASE ABNORMAL [None]
  - OVARIAN CANCER [None]
  - VOMITING [None]
  - UTERINE CYST [None]
